FAERS Safety Report 5009925-X (Version None)
Quarter: 2006Q2

REPORT INFORMATION
  Report Type: 
  Country: None (occurrence: None)
  Receive Date: 20060522
  Receipt Date: 20060309
  Transmission Date: 20061013
  Serious: Yes (Hospitalization)
  Sender: FDA-Public Use
  Company Number: 6021389

PATIENT

DRUGS (1)
  1. BISOPROLOL (CHF) (BISOPROLOL) [Suspect]
     Indication: CARDIAC FAILURE CONGESTIVE

REACTIONS (2)
  - ANGINA UNSTABLE [None]
  - DYSPNOEA EXACERBATED [None]
